FAERS Safety Report 8509713-3 (Version None)
Quarter: 2012Q3

REPORT INFORMATION
  Report Type: 
  Country: None (occurrence: None)
  Receive Date: 20120713
  Receipt Date: 20120706
  Transmission Date: 20120928
  Serious: Yes (Hospitalization)
  Sender: FDA-Public Use
  Company Number: US-ABBOTT-12P-163-0954216-00

PATIENT
  Sex: Female
  Weight: 45.4 kg

DRUGS (8)
  1. CLONIDINE [Concomitant]
     Indication: HYPERTENSION
  2. OXYBUTYNIN [Concomitant]
     Indication: BLADDER SPASM
  3. TRIAMETHOPRIN [Concomitant]
     Indication: POST PROCEDURAL INFECTION
  4. TRIAMETHOPRIN [Concomitant]
     Indication: PROPHYLAXIS
  5. PRAVASTATIN [Concomitant]
     Indication: BLOOD CHOLESTEROL INCREASED
  6. HUMIRA [Suspect]
     Indication: PSORIATIC ARTHROPATHY
     Dates: start: 20090101, end: 20120201
  7. UNKNOWN MEDICATION [Suspect]
     Indication: HYPERTHYROIDISM
     Dates: start: 20111001
  8. TRIAMETHOPRIN [Concomitant]
     Indication: CYSTITIS

REACTIONS (12)
  - KIDNEY INFECTION [None]
  - DYSURIA [None]
  - HYPERTHYROIDISM [None]
  - BLOOD PRESSURE INCREASED [None]
  - PYREXIA [None]
  - RASH [None]
  - ADVERSE DRUG REACTION [None]
  - NAUSEA [None]
  - MALAISE [None]
  - ROSACEA [None]
  - URINE OUTPUT INCREASED [None]
  - FEELING ABNORMAL [None]
